FAERS Safety Report 4895808-2 (Version None)
Quarter: 2006Q1

REPORT INFORMATION
  Report Type: 
  Country: None (occurrence: None)
  Receive Date: 20060125
  Receipt Date: 20060116
  Transmission Date: 20060701
  Serious: Yes (Hospitalization)
  Sender: FDA-Public Use
  Company Number: 108789ISR

PATIENT
  Age: 58 Year
  Sex: Female

DRUGS (13)
  1. FLUOROURACIL [Suspect]
     Indication: BREAST CANCER
     Dosage: INTRAVENOUS (NOS)
     Route: 042
     Dates: start: 20030301, end: 20040101
  2. CARBOPLATIN [Suspect]
     Indication: BREAST CANCER
     Dates: start: 20030301, end: 20031001
  3. METHOTREXATE [Suspect]
     Indication: BREAST CANCER
     Dates: start: 20020801, end: 20030301
  4. EPIRUBICIN [Suspect]
     Indication: BREAST CANCER
     Dosage: INTRAVENOUS (NOS)
     Route: 042
  5. VINORELBINE TARTRATE [Suspect]
     Indication: BREAST CANCER
     Dosage: INTRAVENOUS (NOS)
     Route: 042
     Dates: start: 20031001, end: 20040101
  6. VINORELBINE TARTRATE [Suspect]
     Indication: BREAST CANCER
     Dosage: INTRAVENOUS (NOS)
     Route: 042
     Dates: start: 20040301, end: 20040901
  7. DOCETAXEL [Suspect]
     Indication: BREAST CANCER
     Dosage: INTRAVENOUS (NOS)
     Route: 042
     Dates: start: 19990519
  8. ANASTROZOLE [Suspect]
     Indication: BREAST CANCER
     Dates: start: 20000301
  9. AROMASIN [Suspect]
     Indication: BREAST CANCER
     Dates: start: 20010101
  10. MILTEFOSINE [Suspect]
     Indication: BREAST CANCER
     Dates: start: 20010101
  11. CYCLOPHOSHPAMIDE [Suspect]
     Indication: BREAST CANCER
     Dates: start: 20020801, end: 20030301
  12. XELODA [Suspect]
     Indication: BREAST CANCER
     Dates: start: 20040101
  13. HERCEPTINE (TASTOZUMAB) [Suspect]
     Indication: BREAST CANCER
     Dates: start: 20040301, end: 20050301

REACTIONS (2)
  - CARDIAC FAILURE CHRONIC [None]
  - EJECTION FRACTION DECREASED [None]
